FAERS Safety Report 7976897-5 (Version None)
Quarter: 2011Q4

REPORT INFORMATION
  Report Type: 
  Country: None (occurrence: None)
  Receive Date: 20111213
  Receipt Date: 20111110
  Transmission Date: 20120403
  Serious: No
  Sender: FDA-Public Use
  Company Number: US-AMGEN-USASP2011059178

PATIENT
  Age: 26 Year
  Sex: Female

DRUGS (2)
  1. ENBREL [Suspect]
     Indication: PSORIATIC ARTHROPATHY
     Dosage: 50 MG, QWK
     Dates: start: 20070101, end: 20081201
  2. ENBREL [Suspect]
     Dosage: 50 MG, QWK
     Dates: start: 20020201, end: 20070101

REACTIONS (1)
  - THERAPEUTIC RESPONSE DECREASED [None]
